FAERS Safety Report 8648021 (Version 9)
Quarter: 2017Q1

REPORT INFORMATION
  Report Type: Spontaneous
  Country: US (occurrence: US)
  Receive Date: 20120703
  Receipt Date: 20170327
  Transmission Date: 20170429
  Serious: No
  Sender: FDA-Public Use
  Company Number: US-ASTRAZENECA-2011SE49893

PATIENT
  Age: 22090 Day
  Sex: Female
  Weight: 122.5 kg

DRUGS (50)
  1. SEROQUEL [Suspect]
     Active Substance: QUETIAPINE FUMARATE
     Indication: TACHYPHRENIA
     Route: 048
     Dates: start: 20110814
  2. SEROQUEL [Suspect]
     Active Substance: QUETIAPINE FUMARATE
     Indication: BIPOLAR DISORDER
     Route: 048
     Dates: start: 20110814
  3. SEROQUEL [Suspect]
     Active Substance: QUETIAPINE FUMARATE
     Indication: SLEEP DISORDER
     Route: 048
  4. SEROQUEL [Suspect]
     Active Substance: QUETIAPINE FUMARATE
     Indication: BIPOLAR DISORDER
     Route: 048
  5. SEROQUEL [Suspect]
     Active Substance: QUETIAPINE FUMARATE
     Indication: INSOMNIA
     Dosage: 300.0MG UNKNOWN
     Route: 048
  6. SEROQUEL [Suspect]
     Active Substance: QUETIAPINE FUMARATE
     Indication: TACHYPHRENIA
     Dosage: 400.0MG UNKNOWN
     Route: 048
  7. SIMVASTATIN. [Concomitant]
     Active Substance: SIMVASTATIN
     Indication: HYPERCHOLESTEROLAEMIA
     Dosage: DAILY
     Route: 048
  8. FUROSEMIDE. [Concomitant]
     Active Substance: FUROSEMIDE
  9. SEROQUEL [Suspect]
     Active Substance: QUETIAPINE FUMARATE
     Indication: TACHYPHRENIA
     Route: 048
     Dates: end: 20110814
  10. SEROQUEL [Suspect]
     Active Substance: QUETIAPINE FUMARATE
     Indication: SLEEP DISORDER
     Route: 048
  11. SEROQUEL [Suspect]
     Active Substance: QUETIAPINE FUMARATE
     Indication: SLEEP DISORDER
     Dosage: 400.0MG UNKNOWN
     Route: 048
  12. SEROQUEL [Suspect]
     Active Substance: QUETIAPINE FUMARATE
     Indication: SLEEP DISORDER
     Route: 048
     Dates: start: 20110814
  13. SEROQUEL [Suspect]
     Active Substance: QUETIAPINE FUMARATE
     Indication: MAJOR DEPRESSION
     Route: 048
     Dates: start: 20110814
  14. SEROQUEL [Suspect]
     Active Substance: QUETIAPINE FUMARATE
     Indication: MAJOR DEPRESSION
     Route: 048
  15. SEROQUEL [Suspect]
     Active Substance: QUETIAPINE FUMARATE
     Indication: BIPOLAR DISORDER
     Route: 048
  16. SEROQUEL [Suspect]
     Active Substance: QUETIAPINE FUMARATE
     Indication: BIPOLAR DISORDER
     Dosage: 300.0MG UNKNOWN
     Route: 048
  17. SEROQUEL [Suspect]
     Active Substance: QUETIAPINE FUMARATE
     Indication: SLEEP DISORDER
     Dosage: 2.0DF UNKNOWN
     Route: 048
  18. GABAPENTIN. [Concomitant]
     Active Substance: GABAPENTIN
     Indication: FIBROMYALGIA
     Dosage: DAILY
     Route: 048
  19. CLONAZEPAM. [Concomitant]
     Active Substance: CLONAZEPAM
  20. SEROQUEL [Suspect]
     Active Substance: QUETIAPINE FUMARATE
     Indication: INSOMNIA
     Route: 048
  21. SEROQUEL [Suspect]
     Active Substance: QUETIAPINE FUMARATE
     Indication: BIPOLAR DISORDER
     Dosage: 2.0DF UNKNOWN
     Route: 048
  22. SEROQUEL [Suspect]
     Active Substance: QUETIAPINE FUMARATE
     Indication: MAJOR DEPRESSION
     Dosage: 400.0MG UNKNOWN
     Route: 048
  23. SEROQUEL [Suspect]
     Active Substance: QUETIAPINE FUMARATE
     Indication: SLEEP DISORDER
     Route: 048
     Dates: end: 20110814
  24. SEROQUEL [Suspect]
     Active Substance: QUETIAPINE FUMARATE
     Indication: INSOMNIA
     Route: 048
     Dates: end: 20110814
  25. SEROQUEL [Suspect]
     Active Substance: QUETIAPINE FUMARATE
     Indication: BIPOLAR DISORDER
     Route: 048
     Dates: end: 20110814
  26. SEROQUEL [Suspect]
     Active Substance: QUETIAPINE FUMARATE
     Indication: SLEEP DISORDER
     Dosage: 300.0MG UNKNOWN
     Route: 048
  27. SEROQUEL [Suspect]
     Active Substance: QUETIAPINE FUMARATE
     Indication: MAJOR DEPRESSION
     Dosage: 2.0DF UNKNOWN
     Route: 048
  28. MULTI VITAMIN [Concomitant]
     Active Substance: VITAMINS
  29. BABY ASPIRIN [Concomitant]
     Active Substance: ASPIRIN
     Dosage: 81 MG
  30. SEROQUEL [Suspect]
     Active Substance: QUETIAPINE FUMARATE
     Indication: MAJOR DEPRESSION
     Route: 048
     Dates: end: 20110814
  31. SEROQUEL [Suspect]
     Active Substance: QUETIAPINE FUMARATE
     Indication: INSOMNIA
     Route: 048
     Dates: start: 20110814
  32. SEROQUEL [Suspect]
     Active Substance: QUETIAPINE FUMARATE
     Indication: TACHYPHRENIA
     Route: 048
  33. SEROQUEL [Suspect]
     Active Substance: QUETIAPINE FUMARATE
     Indication: TACHYPHRENIA
     Dosage: 300.0MG UNKNOWN
     Route: 048
  34. SEROQUEL [Suspect]
     Active Substance: QUETIAPINE FUMARATE
     Indication: TACHYPHRENIA
     Dosage: 2.0DF UNKNOWN
     Route: 048
  35. METFORMIN [Concomitant]
     Active Substance: METFORMIN HYDROCHLORIDE
     Indication: DIABETES MELLITUS
     Dosage: DAILY
     Route: 048
  36. ZYRTEC [Concomitant]
     Active Substance: CETIRIZINE HYDROCHLORIDE
  37. VITAMIN D [Concomitant]
     Active Substance: CHOLECALCIFEROL
  38. SEROQUEL [Suspect]
     Active Substance: QUETIAPINE FUMARATE
     Indication: TACHYPHRENIA
     Route: 048
  39. SEROQUEL [Suspect]
     Active Substance: QUETIAPINE FUMARATE
     Indication: MAJOR DEPRESSION
     Route: 048
  40. SEROQUEL [Suspect]
     Active Substance: QUETIAPINE FUMARATE
     Indication: INSOMNIA
     Dosage: 400.0MG UNKNOWN
     Route: 048
  41. SEROQUEL [Suspect]
     Active Substance: QUETIAPINE FUMARATE
     Indication: BIPOLAR DISORDER
     Dosage: 400.0MG UNKNOWN
     Route: 048
  42. CYMBALTA [Concomitant]
     Active Substance: DULOXETINE HYDROCHLORIDE
     Indication: DEPRESSION
     Dosage: DAILY
     Route: 048
  43. QUINAPRIL. [Concomitant]
     Active Substance: QUINAPRIL
     Indication: HYPERTENSION
     Dosage: DAILY
     Route: 048
  44. TIZANIDINE. [Concomitant]
     Active Substance: TIZANIDINE
  45. CALCIUM [Concomitant]
     Active Substance: CALCIUM
  46. VITAMIN B12 [Concomitant]
     Active Substance: CYANOCOBALAMIN
  47. HYDROCODONE/ACETAM [Concomitant]
     Dosage: 7.5-325MG TAB ONCE EVERY 6 HRS
  48. SEROQUEL [Suspect]
     Active Substance: QUETIAPINE FUMARATE
     Indication: INSOMNIA
     Route: 048
  49. SEROQUEL [Suspect]
     Active Substance: QUETIAPINE FUMARATE
     Indication: MAJOR DEPRESSION
     Dosage: 300.0MG UNKNOWN
     Route: 048
  50. SEROQUEL [Suspect]
     Active Substance: QUETIAPINE FUMARATE
     Indication: INSOMNIA
     Dosage: 2.0DF UNKNOWN
     Route: 048

REACTIONS (7)
  - Tachyphrenia [Unknown]
  - Drug effect decreased [Not Recovered/Not Resolved]
  - Adverse event [Unknown]
  - Head injury [Unknown]
  - Drug dose omission [Not Recovered/Not Resolved]
  - Fall [Unknown]
  - Insomnia [Not Recovered/Not Resolved]

NARRATIVE: CASE EVENT DATE: 20110814
